FAERS Safety Report 10733200 (Version 1)
Quarter: 2015Q1

REPORT INFORMATION
  Report Type: Spontaneous
  Country: US (occurrence: US)
  Receive Date: 20150123
  Receipt Date: 20150123
  Transmission Date: 20150721
  Serious: Yes (Hospitalization)
  Sender: FDA-Public Use
  Company Number: US-SA-2015SA005992

PATIENT
  Age: 73 Year
  Sex: Female

DRUGS (6)
  1. METFORMIN [Concomitant]
     Active Substance: METFORMIN HYDROCHLORIDE
  2. LANTUS [Suspect]
     Active Substance: INSULIN GLARGINE
     Indication: TYPE 2 DIABETES MELLITUS
     Route: 065
  3. NOVOLOG [Concomitant]
     Active Substance: INSULIN ASPART
  4. LIDOCAINE. [Concomitant]
     Active Substance: LIDOCAINE
     Indication: SURGERY
  5. LANTUS SOLOSTAR [Suspect]
     Active Substance: INSULIN GLARGINE
     Indication: TYPE 2 DIABETES MELLITUS
     Dosage: DOSE AND DAILY DOSE: 70-74 U
     Route: 065
     Dates: start: 2010
  6. SOLOSTAR [Concomitant]
     Active Substance: DEVICE
     Dates: start: 2010

REACTIONS (7)
  - Pain [Unknown]
  - Surgery [Unknown]
  - Product quality issue [Unknown]
  - Blood glucose increased [Unknown]
  - Injury [Unknown]
  - Stress [Unknown]
  - Wrist surgery [Unknown]

NARRATIVE: CASE EVENT DATE: 201501
